FAERS Safety Report 12039186 (Version 1)
Quarter: 2016Q1

REPORT INFORMATION
  Report Type: Other
  Country: CA (occurrence: CA)
  Receive Date: 20160208
  Receipt Date: 20160208
  Transmission Date: 20160526
  Serious: Yes (Other)
  Sender: FDA-Public Use
  Company Number: CA-DUCHESNAY INC.-1047433

PATIENT
  Age: 27 Year
  Sex: Female
  Weight: 76 kg

DRUGS (6)
  1. SYNTHROID [Suspect]
     Active Substance: LEVOTHYROXINE SODIUM
  2. D-ALPHA TOCOPHEROL/ERGOCALCIFEROL/FOLIC ACID/FOLIC ACID/VITAMIN A/VITA [Concomitant]
  3. IRON [Concomitant]
     Active Substance: IRON
  4. REMICADE [Suspect]
     Active Substance: INFLIXIMAB
     Route: 042
  5. DICLEGIS [Suspect]
     Active Substance: DOXYLAMINE SUCCINATE\PYRIDOXINE HYDROCHLORIDE
  6. ELAVIL [Suspect]
     Active Substance: AMITRIPTYLINE HYDROCHLORIDE

REACTIONS (2)
  - Migraine [Not Recovered/Not Resolved]
  - Nausea [Not Recovered/Not Resolved]
